FAERS Safety Report 5152753-5 (Version None)
Quarter: 2006Q4

REPORT INFORMATION
  Report Type: 
  Country: None (occurrence: None)
  Receive Date: 20061109
  Receipt Date: 20061106
  Transmission Date: 20070319
  Serious: Yes (Other)
  Sender: FDA-Public Use
  Company Number: HQWYE560206NOV06

PATIENT
  Age: 27 Year
  Sex: Female

DRUGS (2)
  1. EFFEXOR XR [Suspect]
     Indication: ANXIETY
     Dosage: 150 MG 1X PER 1 DAY
     Dates: end: 20061001
  2. LEXAPRO [Suspect]
     Indication: ANXIETY
     Dosage: 10 MG 1X PER 1 DAY, ORAL
     Route: 048
     Dates: start: 20061001, end: 20061023

REACTIONS (3)
  - DRUG WITHDRAWAL SYNDROME [None]
  - HYPERTENSION [None]
  - SUICIDAL IDEATION [None]
